FAERS Safety Report 18898180 (Version 1)
Quarter: 2021Q1

REPORT INFORMATION
  Report Type: Spontaneous
  Country: US (occurrence: US)
  Receive Date: 20210213
  Receipt Date: 20210213
  Transmission Date: 20210420
  Serious: Yes (Disabling, Other)
  Sender: FDA-Public Use
  Company Number: None

PATIENT
  Age: 26 Year
  Sex: Male
  Weight: 60.75 kg

DRUGS (7)
  1. NORCO [Suspect]
     Active Substance: ACETAMINOPHEN\HYDROCODONE BITARTRATE
     Indication: INJURY
     Route: 048
  2. BUPRENORPHINE. [Concomitant]
     Active Substance: BUPRENORPHINE
  3. MORPHINE SULFATE IR [Suspect]
     Active Substance: MORPHINE SULFATE
     Route: 048
  4. OXYCODONE [Concomitant]
     Active Substance: OXYCODONE
  5. PERCOCET [Suspect]
     Active Substance: ACETAMINOPHEN\OXYCODONE HYDROCHLORIDE
     Route: 048
  6. KLONOPIN [Concomitant]
     Active Substance: CLONAZEPAM
  7. OXYCODONE HCL IR [Suspect]
     Active Substance: OXYCODONE HYDROCHLORIDE
     Route: 048

REACTIONS (3)
  - Drug tolerance [None]
  - Drug ineffective [None]
  - Product quality issue [None]

NARRATIVE: CASE EVENT DATE: 20200707
